FAERS Safety Report 24725302 (Version 1)
Quarter: 2024Q4

REPORT INFORMATION
  Report Type: Spontaneous
  Country: US (occurrence: US)
  Receive Date: 20241212
  Receipt Date: 20241212
  Transmission Date: 20250114
  Serious: No
  Sender: Kenvue
  Company Number: US-KENVUE-20241106784

PATIENT
  Age: 42 Year
  Sex: Male

DRUGS (1)
  1. MENS ROGAINE EXTRA STRENGTH [Suspect]
     Active Substance: MINOXIDIL
     Indication: Alopecia
     Dosage: SQUIRT IN PALM OF HAND AFTER SHOWERING ON HAIR THAT WAS TOWEL DRIED, TWICE A DAY
     Route: 061
     Dates: start: 20240602

REACTIONS (1)
  - Alopecia [Not Recovered/Not Resolved]

NARRATIVE: CASE EVENT DATE: 20240705
